FAERS Safety Report 7156026-0 (Version None)
Quarter: 2010Q4

REPORT INFORMATION
  Report Type: 
  Country: None (occurrence: None)
  Receive Date: 20101214
  Receipt Date: 20101206
  Transmission Date: 20110411
  Serious: Yes (Other)
  Sender: FDA-Public Use
  Company Number: DE-SANOFI-AVENTIS-2010SA073676

PATIENT
  Age: 63 Year
  Sex: Male

DRUGS (1)
  1. MULTAQ [Suspect]
     Route: 065
     Dates: start: 20101201

REACTIONS (1)
  - ATRIAL FIBRILLATION [None]
